FAERS Safety Report 9411141 (Version 6)
Quarter: 2018Q2

REPORT INFORMATION
  Report Type: Spontaneous
  Country: JP (occurrence: JP)
  Receive Date: 20130721
  Receipt Date: 20180601
  Transmission Date: 20180711
  Serious: Yes (Death, Hospitalization, Other)
  Sender: FDA-Public Use
  Company Number: PHHY2013JP076895

PATIENT
  Age: 23 Year
  Sex: Female
  Weight: 74 kg

DRUGS (1)
  1. TASIGNA [Suspect]
     Active Substance: NILOTINIB
     Indication: CHRONIC MYELOID LEUKAEMIA
     Dosage: 300 MG, BID
     Route: 048
     Dates: start: 20120919, end: 20130424

REACTIONS (23)
  - Disorientation [Fatal]
  - Ascites [Fatal]
  - Pulmonary haemorrhage [Fatal]
  - Pulmonary oedema [Unknown]
  - Dyspnoea [Unknown]
  - Hepatic enzyme increased [Fatal]
  - Hepatic atrophy [Fatal]
  - Cardiac arrest [Fatal]
  - Pneumonia [Unknown]
  - Haemoptysis [Unknown]
  - Prothrombin time shortened [Fatal]
  - Pruritus [Fatal]
  - Decreased appetite [Fatal]
  - Brain oedema [Unknown]
  - Hypoxia [Unknown]
  - Nausea [Fatal]
  - Pyrexia [Fatal]
  - Hyperammonaemia [Fatal]
  - Jaundice [Fatal]
  - Fatigue [Fatal]
  - Platelet count decreased [Not Recovered/Not Resolved]
  - Hepatitis fulminant [Fatal]
  - Chromaturia [Fatal]

NARRATIVE: CASE EVENT DATE: 20130107
